APPROVED DRUG PRODUCT: PROTAMINE SULFATE
Active Ingredient: PROTAMINE SULFATE
Strength: 50MG/5ML (10MG/ML)
Dosage Form/Route: SOLUTION;INTRAVENOUS
Application: N006460 | Product #002
Applicant: ELI LILLY AND CO
Approved: Approved Prior to Jan 1, 1982 | RLD: Yes | RS: No | Type: DISCN